FAERS Safety Report 18403497 (Version 1)
Quarter: 2020Q4

REPORT INFORMATION
  Report Type: Spontaneous
  Country: US (occurrence: US)
  Receive Date: 20201019
  Receipt Date: 20201019
  Transmission Date: 20210114
  Serious: Yes (Other)
  Sender: FDA-Public Use
  Company Number: None

PATIENT
  Age: 69 Year
  Sex: Male
  Weight: 117 kg

DRUGS (6)
  1. OZEMPIC [Suspect]
     Active Substance: SEMAGLUTIDE
     Indication: TYPE 2 DIABETES MELLITUS
     Dosage: ?          QUANTITY:1 INJECTION(S);OTHER FREQUENCY:WEEKLY;?
     Route: 058
     Dates: start: 20200806, end: 20201018
  2. LISINOPRIL. [Concomitant]
     Active Substance: LISINOPRIL
  3. ATORVISTATIN [Concomitant]
  4. JARDIANCE [Concomitant]
     Active Substance: EMPAGLIFLOZIN
  5. ASPIRIN. [Concomitant]
     Active Substance: ASPIRIN
  6. VITAMIN D3 [Concomitant]
     Active Substance: CHOLECALCIFEROL

REACTIONS (6)
  - Haemorrhage [None]
  - Hyperhidrosis [None]
  - Sinus disorder [None]
  - Biliary obstruction [None]
  - Constipation [None]
  - Chills [None]

NARRATIVE: CASE EVENT DATE: 20201017
